FAERS Safety Report 7775853-X (Version None)
Quarter: 2011Q3

REPORT INFORMATION
  Report Type: 
  Country: None (occurrence: None)
  Receive Date: 20110923
  Receipt Date: 20110920
  Transmission Date: 20111222
  Serious: Yes (Other)
  Sender: FDA-Public Use
  Company Number: US-ELI_LILLY_AND_COMPANY-US201108006195

PATIENT
  Age: 75 Year
  Sex: Male
  Weight: 111.11 kg

DRUGS (15)
  1. CRESTOR [Concomitant]
     Dosage: 40 MG, EACH EVENING
  2. MULTI-VITAMIN [Concomitant]
     Dosage: UNK, QD
  3. HUMULIN 70/30 [Suspect]
     Indication: DIABETES MELLITUS
     Dosage: 60 U, BID
     Dates: start: 19970101
  4. COD LIVER OIL [Concomitant]
  5. HYDROCODONE BITARTRATE AND ACETAMINOPHEN [Concomitant]
     Dosage: UNK, PRN
  6. LISINOPRIL [Concomitant]
  7. FLUOXETINE [Concomitant]
     Dosage: 20 MG, UNK
  8. AZOPT [Concomitant]
     Dosage: UNK, BID
  9. CARVEDILOL [Concomitant]
     Dosage: 12.5 MG, BID
  10. FUROSEMIDE [Concomitant]
     Dosage: 40 MG, BID
  11. UROXATRAL [Concomitant]
     Dosage: 10 MG, QD
  12. ZETIA [Concomitant]
     Dosage: 10 MG, QD
  13. ISOSORBIDE DINITRATE [Concomitant]
     Dosage: 30 MG, BID
  14. PLAVIX [Concomitant]
     Dosage: 75 MG, QD
  15. ASPIRIN [Concomitant]
     Dosage: 325 MG, QD

REACTIONS (8)
  - MACULAR DEGENERATION [None]
  - LACERATION [None]
  - GLAUCOMA [None]
  - STENT PLACEMENT [None]
  - VISUAL IMPAIRMENT [None]
  - NEUROPATHY PERIPHERAL [None]
  - FALL [None]
  - COORDINATION ABNORMAL [None]
